FAERS Safety Report 4579468-6 (Version None)
Quarter: 2005Q1

REPORT INFORMATION
  Report Type: 
  Country: None (occurrence: None)
  Receive Date: 20050209
  Receipt Date: 20050126
  Transmission Date: 20050727
  Serious: Yes (Life-Threatening, Hospitalization)
  Sender: FDA-Public Use
  Company Number: JP_040102551

PATIENT
  Age: 54 Year
  Sex: Female

DRUGS (9)
  1. ZYPREXA [Suspect]
     Indication: CONDITION AGGRAVATED
     Dosage: 40 MG DAY
     Dates: start: 20030201, end: 20030201
  2. ZYPREXA [Suspect]
     Indication: MANIA
     Dosage: 40 MG DAY
     Dates: start: 20030201, end: 20030201
  3. HALOPERIDOL [Concomitant]
  4. LITHIUM CARBONATE [Concomitant]
  5. LEVOMEPROMAZINE [Concomitant]
  6. CLONAZEPAM [Concomitant]
  7. BIPERIDEN HYDROCHLORIDE TAB [Concomitant]
  8. PROMETHAZINE HCL [Concomitant]
  9. MAGNESIUM OXIDE [Concomitant]

REACTIONS (10)
  - BLOOD FIBRINOGEN INCREASED [None]
  - C-REACTIVE PROTEIN INCREASED [None]
  - CONDITION AGGRAVATED [None]
  - DEEP VEIN THROMBOSIS [None]
  - DRUG INTERACTION [None]
  - FIBRIN D DIMER INCREASED [None]
  - HYPERPROLACTINAEMIA [None]
  - MANIA [None]
  - PRESCRIBED OVERDOSE [None]
  - PULMONARY EMBOLISM [None]
